FAERS Safety Report 9991692 (Version 1)
Quarter: 2014Q1

REPORT INFORMATION
  Report Type: Spontaneous
  Country: US (occurrence: US)
  Receive Date: 20140310
  Receipt Date: 20140310
  Transmission Date: 20141002
  Serious: No
  Sender: FDA-Public Use
  Company Number: US-009507513-1403USA002523

PATIENT
  Sex: Female

DRUGS (2)
  1. TIMOPTIC [Suspect]
     Indication: PRODUCT USED FOR UNKNOWN INDICATION
  2. ZIOPTAN [Suspect]
     Indication: PRODUCT USED FOR UNKNOWN INDICATION
     Dosage: UNK
     Route: 047

REACTIONS (1)
  - Alopecia [Unknown]
